FAERS Safety Report 10359907 (Version 1)
Quarter: 2014Q3

REPORT INFORMATION
  Report Type: Spontaneous
  Country: IT (occurrence: IT)
  Receive Date: 20140804
  Receipt Date: 20140804
  Transmission Date: 20150326
  Serious: No
  Sender: FDA-Public Use
  Company Number: IT-ELI_LILLY_AND_COMPANY-IT201407010175

PATIENT
  Age: 71 Year
  Sex: Male

DRUGS (2)
  1. CIALIS [Suspect]
     Active Substance: TADALAFIL
     Indication: ERECTILE DYSFUNCTION
     Dosage: 5 MG, QD
     Route: 065
     Dates: start: 201307
  2. CIALIS [Suspect]
     Active Substance: TADALAFIL
     Dosage: 20 MG, OTHER
     Route: 065

REACTIONS (1)
  - Visual acuity reduced [Unknown]
